FAERS Safety Report 22656197 (Version 1)
Quarter: 2023Q2

REPORT INFORMATION
  Report Type: Spontaneous
  Country: FR (occurrence: FR)
  Receive Date: 20230629
  Receipt Date: 20230629
  Transmission Date: 20230722
  Serious: Yes (Other)
  Sender: FDA-Public Use
  Company Number: None

PATIENT
  Age: 38 Year
  Sex: Female
  Weight: 164 kg

DRUGS (4)
  1. APREPITANT [Suspect]
     Active Substance: APREPITANT
     Indication: Chemotherapy side effect prophylaxis
     Dosage: C1 AT 11AM WITH 125MG
     Route: 048
     Dates: start: 20230509, end: 20230509
  2. CYCLOPHOSPHAMIDE [Suspect]
     Active Substance: CYCLOPHOSPHAMIDE
     Indication: Breast cancer
     Dosage: C1 AT 11AM WITH 800MG
     Route: 042
     Dates: start: 20230509, end: 20230509
  3. METHYLPREDNISOLONE [Suspect]
     Active Substance: METHYLPREDNISOLONE
     Indication: Chemotherapy side effect prophylaxis
     Dosage: C1 AT 11AM WITH 60MG
     Route: 042
     Dates: start: 20230509, end: 20230509
  4. EPIRUBICIN [Suspect]
     Active Substance: EPIRUBICIN
     Indication: Breast cancer
     Dosage: C1 AT 11AM WITH 160MG
     Route: 042
     Dates: start: 20230509, end: 20230509

REACTIONS (2)
  - Paraesthesia [Recovered/Resolved]
  - Hypophosphataemia [Recovered/Resolved]

NARRATIVE: CASE EVENT DATE: 20230509
